FAERS Safety Report 23511408 (Version 2)
Quarter: 2024Q2

REPORT INFORMATION
  Report Type: Spontaneous
  Country: US (occurrence: US)
  Receive Date: 20240212
  Receipt Date: 20240401
  Transmission Date: 20240716
  Serious: No
  Sender: FDA-Public Use
  Company Number: US-JNJFOC-20240165931

PATIENT
  Age: 48 Year
  Sex: Male

DRUGS (5)
  1. SIMPONI ARIA [Suspect]
     Active Substance: GOLIMUMAB
     Indication: Ankylosing spondylitis
     Route: 041
     Dates: start: 20240109
  2. DIAZEPAM [Concomitant]
     Active Substance: DIAZEPAM
     Indication: Panic disorder
     Route: 048
     Dates: start: 2014
  3. ESCITALOPRAM [Concomitant]
     Active Substance: ESCITALOPRAM OXALATE
     Indication: Panic attack
     Dates: start: 2014
  4. ATORVASTATIN [Concomitant]
     Active Substance: ATORVASTATIN
     Indication: Cardiac disorder
     Dates: start: 2023
  5. FENOFIBRATE [Concomitant]
     Active Substance: FENOFIBRATE
     Indication: Blood triglycerides increased
     Dates: start: 2014

REACTIONS (7)
  - Anxiety [Unknown]
  - Diarrhoea [Unknown]
  - Insomnia [Unknown]
  - Nightmare [Unknown]
  - Panic attack [Unknown]
  - Incontinence [Unknown]
  - Withdrawal syndrome [Unknown]

NARRATIVE: CASE EVENT DATE: 20240101
